FAERS Safety Report 23998028 (Version 2)
Quarter: 2024Q2

REPORT INFORMATION
  Report Type: Spontaneous
  Country: US (occurrence: US)
  Receive Date: 20240621
  Receipt Date: 20240627
  Transmission Date: 20240716
  Serious: No
  Sender: FDA-Public Use
  Company Number: US-JNJFOC-20240650777

PATIENT
  Age: 41 Year
  Sex: Female
  Weight: 100.79 kg

DRUGS (2)
  1. SPRAVATO [Suspect]
     Active Substance: ESKETAMINE
     Indication: Depression
     Dates: start: 20240617, end: 20240617
  2. SPRAVATO [Suspect]
     Active Substance: ESKETAMINE
     Dosage: SERIAL NUMBER: 190107479970
     Dates: start: 202306

REACTIONS (2)
  - Device issue [Unknown]
  - Underdose [Unknown]

NARRATIVE: CASE EVENT DATE: 20240617
